FAERS Safety Report 6472228-0 (Version None)
Quarter: 2009Q4

REPORT INFORMATION
  Report Type: 
  Country: None (occurrence: None)
  Receive Date: 20091203
  Receipt Date: 20091125
  Transmission Date: 20100525
  Serious: Yes (Hospitalization, Other)
  Sender: FDA-Public Use
  Company Number: US-MILLENNIUM PHARMACEUTICALS, INC.-2009-04917

PATIENT

DRUGS (4)
  1. VELCADE [Suspect]
     Indication: THYROID CANCER
     Dosage: 1.3 MG/M2, CYCLIC
     Route: 040
     Dates: start: 20090729, end: 20091031
  2. VANDETANIB [Suspect]
     Indication: THYROID CANCER
     Dosage: 200 MG, QD
     Route: 048
     Dates: start: 20090729, end: 20091118
  3. DEXAMETHASONE TAB [Concomitant]
     Indication: INFLAMMATION
     Dosage: 2 MG, TID
  4. DEXAMETHASONE TAB [Concomitant]
     Indication: PAIN

REACTIONS (4)
  - EXFOLIATIVE RASH [None]
  - LYMPHOPENIA [None]
  - OEDEMA PERIPHERAL [None]
  - THROMBOSIS [None]
